FAERS Safety Report 9153768 (Version 1)
Quarter: 2013Q1

REPORT INFORMATION
  Report Type: Spontaneous
  Country: US (occurrence: None)
  Receive Date: 20130306
  Receipt Date: 20130306
  Transmission Date: 20140127
  Serious: No
  Sender: FDA-Public Use
  Company Number: None

PATIENT
  Age: 68 Year
  Sex: Male

DRUGS (2)
  1. VICKS SINEX [Suspect]
  2. 4-WAY 12-HOUR [Concomitant]

REACTIONS (10)
  - Nasal congestion [None]
  - Nasal congestion [None]
  - Burning sensation [None]
  - Dry throat [None]
  - Aphonia [None]
  - Cough [None]
  - Oral discomfort [None]
  - Oral discomfort [None]
  - Dysgeusia [None]
  - Blood pressure increased [None]
